FAERS Safety Report 9749117 (Version 1)
Quarter: 2013Q4

REPORT INFORMATION
  Report Type: Spontaneous
  Country: US (occurrence: US)
  Receive Date: 20131212
  Receipt Date: 20131212
  Transmission Date: 20140711
  Serious: No
  Sender: FDA-Public Use
  Company Number: US-TEVA-391477USA

PATIENT
  Age: 41 Year
  Sex: Female
  Weight: 63.56 kg

DRUGS (5)
  1. PARAGARD 380A [Suspect]
     Indication: CONTRACEPTION
     Route: 015
     Dates: start: 20130201
  2. GEODON [Concomitant]
     Indication: PSYCHOTIC DISORDER
  3. KLONOPIN [Concomitant]
     Indication: ANXIETY
  4. DEPAKOTE [Concomitant]
     Indication: BIPOLAR DISORDER
  5. METFORMIN [Concomitant]
     Indication: BLOOD TESTOSTERONE INCREASED

REACTIONS (1)
  - Device expulsion [Not Recovered/Not Resolved]
